FAERS Safety Report 6129281-3 (Version None)
Quarter: 2009Q1

REPORT INFORMATION
  Report Type: 
  Country: None (occurrence: None)
  Receive Date: 20090320
  Receipt Date: 20090313
  Transmission Date: 20090719
  Serious: Yes (Death)
  Sender: FDA-Public Use
  Company Number: TCI2009A00882

PATIENT
  Age: 60 Year

DRUGS (4)
  1. ACTOS [Suspect]
     Indication: DIABETES MELLITUS
     Dosage: PER ORAL
     Route: 048
     Dates: end: 20090228
  2. AMARYL [Concomitant]
  3. PRAVAPEAK (PRAVASTATIN SODIUM) [Concomitant]
  4. SEIBULE (MIGLITOL) [Concomitant]

REACTIONS (3)
  - CARDIAC FAILURE [None]
  - COUGH [None]
  - FLUID RETENTION [None]
